FAERS Safety Report 5226001-1 (Version None)
Quarter: 2007Q1

REPORT INFORMATION
  Report Type: 
  Country: None (occurrence: None)
  Receive Date: 20070129
  Receipt Date: 20070122
  Transmission Date: 20070707
  Serious: Yes (Hospitalization)
  Sender: FDA-Public Use
  Company Number: 152129USA

PATIENT
  Age: 62 Year
  Sex: Male

DRUGS (8)
  1. FLUOROURACIL [Suspect]
     Indication: METASTATIC GASTRIC CANCER
     Dosage: CYCLE 1, DAY 1-5 EVERY 28 DAYS
     Dates: start: 20070111, end: 20070115
  2. CISPLATIN [Suspect]
     Indication: METASTATIC GASTRIC CANCER
     Dosage: CYCLE 1 (178 MG, 1 IN 28 D), INTRAVENOUS
     Route: 036
     Dates: start: 20070111, end: 20070111
  3. APREPITANT [Concomitant]
  4. LORAZEPAM [Concomitant]
  5. ONDANSETRON [Concomitant]
  6. PROCHLORPERAZINE EDISYLATE [Concomitant]
  7. HYDROCODONE [Concomitant]
  8. ONDANSETRON [Concomitant]

REACTIONS (4)
  - HYPERBILIRUBINAEMIA [None]
  - HYPERGLYCAEMIA [None]
  - METABOLIC ACIDOSIS [None]
  - RENAL FAILURE [None]
